FAERS Safety Report 5206928-7 (Version None)
Quarter: 2007Q1

REPORT INFORMATION
  Report Type: 
  Country: None (occurrence: None)
  Receive Date: 20070105
  Receipt Date: 20070105
  Transmission Date: 20070707
  Serious: Yes (Life-Threatening, Hospitalization)
  Sender: FDA-Public Use
  Company Number: None

PATIENT
  Sex: Male
  Weight: 81 kg

DRUGS (11)
  1. FLUVASTATIN [Suspect]
     Indication: ISCHAEMIC HEART DISEASE PROPHYLAXIS
     Dosage: 80 MG  PO  DAILY
     Route: 048
     Dates: start: 20040811, end: 20061004
  2. TACROLIMUS [Concomitant]
  3. MYCOPHENOLATE MOFETIL [Concomitant]
  4. PREDNISONE [Concomitant]
  5. AMLODIPINE [Concomitant]
  6. HUMALOG [Concomitant]
  7. LANTUS [Concomitant]
  8. METOPROLOL SUCCINATE [Concomitant]
  9. RANITIDINE [Concomitant]
  10. GANCICLOVIR [Concomitant]
  11. SULFASALAZINE [Concomitant]

REACTIONS (13)
  - ALANINE AMINOTRANSFERASE INCREASED [None]
  - ANOREXIA [None]
  - ASPARTATE AMINOTRANSFERASE INCREASED [None]
  - ASTHENIA [None]
  - BLOOD CREATINE PHOSPHOKINASE INCREASED [None]
  - CHROMATURIA [None]
  - CHRONIC HEPATIC FAILURE [None]
  - FATIGUE [None]
  - HAEMODIALYSIS [None]
  - LIVER TRANSPLANT REJECTION [None]
  - MUSCLE ATROPHY [None]
  - RENAL FAILURE ACUTE [None]
  - WEIGHT DECREASED [None]
